FAERS Safety Report 5505079-1 (Version None)
Quarter: 2007Q4

REPORT INFORMATION
  Report Type: 
  Country: None (occurrence: None)
  Receive Date: 20071031
  Receipt Date: 20071031
  Transmission Date: 20080405
  Serious: Yes (Life-Threatening)
  Sender: FDA-Public Use
  Company Number: None

PATIENT
  Age: 84 Year
  Sex: Female
  Weight: 43.0917 kg

DRUGS (17)
  1. CLARITHROMYCIN [Suspect]
     Indication: HELICOBACTER INFECTION
     Dosage: 500MG  BID  PO
     Route: 048
     Dates: start: 20071016, end: 20071021
  2. MOXIFLOXACIN    400MG   UNK [Suspect]
     Indication: PNEUMONIA
     Dosage: 400MG  ONE  IV  (ONE DOSE)
     Route: 042
     Dates: start: 20071022, end: 20071022
  3. OMEPRAZOLE [Concomitant]
  4. VARENICLINE TARTRATE [Concomitant]
  5. IRBESARTAN [Concomitant]
  6. ATENOLOL [Concomitant]
  7. FUROSEMIDE [Concomitant]
  8. FELODIPINE [Concomitant]
  9. ASPIRIN [Concomitant]
  10. ATORVASTATIN CALCIUM [Concomitant]
  11. ALBUTEROL [Concomitant]
  12. SALMETEROL/FLUTICASONE [Concomitant]
  13. TIOTROPIUM BROMIDE [Concomitant]
  14. SODIUM CHLORIDE [Concomitant]
  15. GUAIAFENESIN / DEXTOMET [Concomitant]
  16. GABAPENTIN [Concomitant]
  17. OLOPATADINE [Concomitant]

REACTIONS (19)
  - BLOOD AMYLASE INCREASED [None]
  - BRADYCARDIA [None]
  - CHRONIC OBSTRUCTIVE PULMONARY DISEASE [None]
  - CIRCULATORY COLLAPSE [None]
  - DRUG INTERACTION [None]
  - DYSPNOEA [None]
  - ELECTROCARDIOGRAM QT PROLONGED [None]
  - ELECTROCARDIOGRAM ST SEGMENT ELEVATION [None]
  - HYPERKALAEMIA [None]
  - HYPERTENSION [None]
  - HYPOTENSION [None]
  - LIPASE INCREASED [None]
  - LIVER FUNCTION TEST ABNORMAL [None]
  - LUNG NEOPLASM [None]
  - PLEURAL EFFUSION [None]
  - PNEUMONIA [None]
  - RENAL FAILURE ACUTE [None]
  - SUPRAVENTRICULAR EXTRASYSTOLES [None]
  - TACHYCARDIA [None]
